FAERS Safety Report 10306749 (Version 4)
Quarter: 2014Q3

REPORT INFORMATION
  Report Type: Spontaneous
  Country: US (occurrence: US)
  Receive Date: 20140715
  Receipt Date: 20140908
  Transmission Date: 20150326
  Serious: Yes (Other)
  Sender: FDA-Public Use
  Company Number: US-PURDUE-USA-2014-0114904

PATIENT
  Age: 72 Year
  Sex: Male

DRUGS (4)
  1. OXYCONTIN [Suspect]
     Active Substance: OXYCODONE HYDROCHLORIDE
     Dosage: 80 MG, Q12H
     Route: 048
     Dates: start: 201405
  2. OXYCONTIN [Suspect]
     Active Substance: OXYCODONE HYDROCHLORIDE
     Dosage: UNK
     Route: 048
     Dates: start: 2012
  3. OXYCONTIN [Suspect]
     Active Substance: OXYCODONE HYDROCHLORIDE
     Indication: RHEUMATOID ARTHRITIS
     Dosage: 40 MG, BID
     Route: 048
     Dates: start: 20140722, end: 20140803
  4. OXYCONTIN [Suspect]
     Active Substance: OXYCODONE HYDROCHLORIDE
     Dosage: 40 MG, Q12H
     Route: 048
     Dates: start: 201405

REACTIONS (7)
  - Skin lesion [Unknown]
  - Nasopharyngitis [Unknown]
  - Inappropriate schedule of drug administration [Unknown]
  - Skin cancer [Unknown]
  - Peripheral swelling [Unknown]
  - Gait disturbance [Unknown]
  - Fall [Recovered/Resolved]

NARRATIVE: CASE EVENT DATE: 20140522
